FAERS Safety Report 11442929 (Version 3)
Quarter: 2015Q3

REPORT INFORMATION
  Report Type: Spontaneous
  Country: CN (occurrence: CN)
  Receive Date: 20150901
  Receipt Date: 20150916
  Transmission Date: 20151125
  Serious: Yes (Death, Life-Threatening, Other)
  Sender: FDA-Public Use
  Company Number: CN-PURDUE PHARMA-GBR-2015-0030568

PATIENT
  Age: 59 Year
  Sex: Male

DRUGS (4)
  1. OXYCONTIN [Suspect]
     Active Substance: OXYCODONE HYDROCHLORIDE
     Indication: CANCER PAIN
     Dosage: 60 MG, SINGLE
     Route: 048
  2. MORPHINE HYDROCHLORIDE [Suspect]
     Active Substance: MORPHINE HYDROCHLORIDE
     Dosage: 10 MG, SINGLE
     Route: 030
     Dates: start: 20150818, end: 20150818
  3. MORPHINE HYDROCHLORIDE [Suspect]
     Active Substance: MORPHINE HYDROCHLORIDE
     Dosage: 10 MG, SINGLE
     Route: 030
     Dates: start: 20150818, end: 20150818
  4. MORPHINE HYDROCHLORIDE [Suspect]
     Active Substance: MORPHINE HYDROCHLORIDE
     Indication: BREAKTHROUGH PAIN
     Dosage: 20 MG, SINGLE
     Route: 030
     Dates: start: 20150818, end: 20150818

REACTIONS (9)
  - Circulatory collapse [Fatal]
  - Altered state of consciousness [Recovered/Resolved]
  - Respiratory depression [Recovered/Resolved]
  - Miosis [Recovered/Resolved]
  - Pupillary reflex impaired [Recovered/Resolved]
  - Hypopnoea [Recovered/Resolved]
  - Agitation [Recovered/Resolved]
  - Respiratory failure [Fatal]
  - Lethargy [Recovered/Resolved]

NARRATIVE: CASE EVENT DATE: 20150818
